FAERS Safety Report 5867222-4 (Version None)
Quarter: 2008Q3

REPORT INFORMATION
  Report Type: 
  Country: None (occurrence: None)
  Receive Date: 20080902
  Receipt Date: 20080523
  Transmission Date: 20090109
  Serious: Yes (Other)
  Sender: FDA-Public Use
  Company Number: PHHY2008BR19068

PATIENT
  Sex: Female
  Weight: 20 kg

DRUGS (1)
  1. TEGRETOL [Suspect]
     Indication: HEAD DISCOMFORT
     Dosage: 2.5 ML, Q12H
     Route: 048

REACTIONS (5)
  - AGITATION [None]
  - DELIRIUM [None]
  - DRY MOUTH [None]
  - HEADACHE [None]
  - INSOMNIA [None]
